FAERS Safety Report 10388980 (Version 1)
Quarter: 2014Q1

REPORT INFORMATION
  Report Type: Spontaneous
  Country: US (occurrence: None)
  Receive Date: 20140306
  Receipt Date: 20140306
  Transmission Date: 20141002
  Serious: Yes (Hospitalization)
  Sender: FDA-Public Use
  Company Number: 163-21880-13112591

PATIENT
  Age: 45 Year
  Sex: Male
  Weight: 67 kg

DRUGS (18)
  1. REVLIMID (LENALIDOMIDE) (CAPSULES) [Suspect]
     Indication: PLASMA CELL MYELOMA
     Route: 048
     Dates: start: 20131023, end: 20131103
  2. DEXAMETHASONE (DEXAMETHASONE) [Suspect]
     Indication: PLASMA CELL MYELOMA
     Route: 048
     Dates: start: 20131023, end: 20131023
  3. SAR650984 [Suspect]
     Indication: PLASMA CELL MYELOMA
     Dosage: 10 MG/KG, 2 IN 28 D, INTRAVENOUS
     Route: 042
     Dates: start: 20131023, end: 20131023
  4. LACTULOSE (LACTULOSE) [Concomitant]
  5. DRONABINOL (DRONABINOL) [Concomitant]
  6. BUPROPION (BUPROPION) [Concomitant]
  7. ASPIRINE (ACETYLSALICYLIC ACID) [Concomitant]
  8. SENNA (SENNA) [Concomitant]
  9. ACYCLOVIR (ACICLOVIR) [Concomitant]
  10. SUCRALFATE (SUCRALFATE) [Concomitant]
  11. MIRALAX (MACROGOL) [Concomitant]
  12. ALBUTEROL (SALBUTAMOL) [Concomitant]
  13. LORAZEPAM (LORAZEPAM) [Concomitant]
  14. PROCHLORPERAZINE (PROCHLORPERAZINE) [Concomitant]
  15. CALCIUM CARBONATE (CALCIUM CARBONATE) [Concomitant]
  16. ONDANSETRON (ONDANSETRON) [Concomitant]
  17. OXYCODONE (OXYCODONE) [Concomitant]
  18. OMEPRAZOLE (OMEPRAZOLE) [Concomitant]

REACTIONS (1)
  - Blood bilirubin increased [None]
